FAERS Safety Report 25146687 (Version 1)
Quarter: 2025Q2

REPORT INFORMATION
  Report Type: Spontaneous
  Country: US (occurrence: None)
  Receive Date: 20250331
  Receipt Date: 20250331
  Transmission Date: 20250717
  Serious: Yes (Other)
  Sender: FDA-CTU
  Company Number: None

PATIENT
  Age: 71 Year
  Sex: Female
  Weight: 113.4 kg

DRUGS (1)
  1. OLOPATADINE HYDROCHLORIDE [Suspect]
     Active Substance: OLOPATADINE HYDROCHLORIDE
     Indication: Multiple allergies
     Dosage: 1 GTT BID INTRAOCULAR
     Route: 031
     Dates: start: 20250327, end: 20250329

REACTIONS (3)
  - Dizziness [None]
  - Blood pressure decreased [None]
  - Gait disturbance [None]

NARRATIVE: CASE EVENT DATE: 20250329
